FAERS Safety Report 20609344 (Version 2)
Quarter: 2022Q1

REPORT INFORMATION
  Report Type: Report from Study
  Country: IT (occurrence: IT)
  Receive Date: 20220317
  Receipt Date: 20220330
  Transmission Date: 20220423
  Serious: Yes (Death, Hospitalization, Other)
  Sender: FDA-Public Use
  Company Number: IT-AMGEN-ITANI2021176332

PATIENT
  Age: 63 Year
  Sex: Male

DRUGS (16)
  1. AMG-510 [Suspect]
     Active Substance: AMG-510
     Indication: Non-small cell lung cancer metastatic
     Dosage: 960 MILLIGRAM, QD
     Route: 048
     Dates: start: 20210702, end: 20211018
  2. AMG-510 [Suspect]
     Active Substance: AMG-510
     Dosage: 960 MILLIGRAM, QD
     Route: 048
     Dates: start: 20211027, end: 20211110
  3. AMG-510 [Suspect]
     Active Substance: AMG-510
     Dosage: 120 MILLIGRAM, BID
     Route: 048
     Dates: start: 20211122
  4. ASPIRIN [Concomitant]
     Active Substance: ASPIRIN
     Dosage: 100 MILLIGRAM, QD
     Route: 048
     Dates: start: 20190829
  5. LEVOTHYROXINE SODIUM [Concomitant]
     Active Substance: LEVOTHYROXINE SODIUM
     Dosage: 150 MILLIGRAM, QD
     Route: 048
     Dates: start: 20191223
  6. NORVASC [Concomitant]
     Active Substance: AMLODIPINE BESYLATE
     Dosage: 5 MILLIGRAM, QD
     Route: 048
     Dates: start: 20200414
  7. HYDROCHLOROTHIAZIDE\OLMESARTAN MEDOXOMIL [Concomitant]
     Active Substance: HYDROCHLOROTHIAZIDE\OLMESARTAN MEDOXOMIL
     Dosage: 40+12.5 MG, QD
     Route: 048
     Dates: start: 20200414
  8. ORAMORPH SR SUSTAINED RELEASE [Concomitant]
     Active Substance: MORPHINE SULFATE
     Dosage: 5 ML/30 MG, AS NECESSARY
     Route: 048
     Dates: start: 20210517
  9. IBUPROFEN [Concomitant]
     Active Substance: IBUPROFEN
     Dosage: 600 MILLIGRAM, TID
     Route: 048
     Dates: start: 20210721
  10. FENTANYL CITRATE [Concomitant]
     Active Substance: FENTANYL CITRATE
     Dosage: 200 MICROGRAM, AS NECESSARY
     Route: 048
     Dates: start: 20210803
  11. PANTOPRAZOLE SODIUM [Concomitant]
     Active Substance: PANTOPRAZOLE SODIUM
     Dosage: 40 MILLIGRAM, QD
     Route: 048
     Dates: start: 20190716
  12. ENOXAPARIN SODIUM [Concomitant]
     Active Substance: ENOXAPARIN SODIUM
     Dosage: 4000 IU/0.4 ML, TID
     Route: 048
     Dates: start: 20211210
  13. TAVOR (LORAZEPAM) [Concomitant]
     Active Substance: LORAZEPAM
     Dosage: 1 MILLIGRAM, AS NECESSARY
     Route: 048
     Dates: start: 20211029
  14. AMITRIPTYLINE HYDROCHLORIDE [Concomitant]
     Active Substance: AMITRIPTYLINE HYDROCHLORIDE
     Dosage: 40MG/ML, 5 TIMES A DAY
     Route: 048
     Dates: start: 20211029
  15. NOVALGIN (METAMIZOLE SODIUM) [Concomitant]
     Active Substance: METAMIZOLE SODIUM
     Dosage: 500 MG/ML, 5 TIMES A DAY
     Route: 048
     Dates: start: 20211029
  16. MORPHINE [Concomitant]
     Active Substance: MORPHINE
     Dosage: 70+30 MILLIGRAM, QD
     Route: 042
     Dates: start: 20211029

REACTIONS (4)
  - Respiratory failure [Fatal]
  - COVID-19 pneumonia [Fatal]
  - Acetabulum fracture [Recovering/Resolving]
  - Diarrhoea [Recovered/Resolved]

NARRATIVE: CASE EVENT DATE: 20210921
